FAERS Safety Report 6255720-3 (Version None)
Quarter: 2009Q3

REPORT INFORMATION
  Report Type: 
  Country: None (occurrence: None)
  Receive Date: 20090701
  Receipt Date: 20090622
  Transmission Date: 20100115
  Serious: Yes (Other)
  Sender: FDA-Public Use
  Company Number: FABR-1000865

PATIENT
  Age: 35 Year
  Sex: Male

DRUGS (1)
  1. FABRAZYME [Suspect]
     Indication: FABRY'S DISEASE
     Dosage: 1 MG/KG, Q2W, INTRAVENOUS
     Route: 042
     Dates: start: 20040401

REACTIONS (4)
  - CEREBRAL INFARCTION [None]
  - CONDITION AGGRAVATED [None]
  - DEMENTIA [None]
  - MONOPARESIS [None]
